FAERS Safety Report 10801274 (Version 1)
Quarter: 2015Q1

REPORT INFORMATION
  Report Type: Spontaneous
  Country: TR (occurrence: TR)
  Receive Date: 20150217
  Receipt Date: 20150217
  Transmission Date: 20150721
  Serious: Yes (Other)
  Sender: FDA-Public Use
  Company Number: PHHY2015TR015184

PATIENT
  Age: 12 Year
  Sex: Female
  Weight: 28 kg

DRUGS (2)
  1. OMNITROPE [Suspect]
     Active Substance: SOMATROPIN
     Dosage: 1.5 MG, QD (2 DAYS)
     Route: 058
     Dates: start: 20120629
  2. OMNITROPE [Suspect]
     Active Substance: SOMATROPIN
     Indication: PRODUCT USED FOR UNKNOWN INDICATION
     Dosage: 1.4 MG, QD
     Route: 058
     Dates: start: 20120629

REACTIONS (1)
  - Growth accelerated [Not Recovered/Not Resolved]
